FAERS Safety Report 9390968 (Version 2)
Quarter: 2013Q3

REPORT INFORMATION
  Report Type: Spontaneous
  Country: US (occurrence: US)
  Receive Date: 20130709
  Receipt Date: 20130717
  Transmission Date: 20140515
  Serious: No
  Sender: FDA-Public Use
  Company Number: US-PFIZER INC-2013199094

PATIENT
  Age: 90 Year
  Sex: Female
  Weight: 56.69 kg

DRUGS (3)
  1. GLYNASE [Suspect]
     Indication: DIABETES MELLITUS
     Dosage: 1.5 MG, UNK
     Dates: start: 1972
  2. GLYNASE [Suspect]
     Dosage: UNK
  3. JANUVIA [Suspect]
     Dosage: UNK

REACTIONS (8)
  - Poor quality drug administered [Unknown]
  - Dizziness [Unknown]
  - Insomnia [Unknown]
  - Hypertension [Unknown]
  - Product quality issue [Unknown]
  - Urticaria [Unknown]
  - Drug intolerance [Unknown]
  - Gait disturbance [Unknown]
